FAERS Safety Report 11108767 (Version 1)
Quarter: 2015Q2

REPORT INFORMATION
  Report Type: Spontaneous
  Country: US (occurrence: None)
  Receive Date: 20150511
  Receipt Date: 20150511
  Transmission Date: 20150821
  Serious: Yes (Life-Threatening, Hospitalization, Disabling, Other)
  Sender: FDA-Public Use
  Company Number: None

PATIENT
  Age: 63 Year
  Sex: Female
  Weight: 95.26 kg

DRUGS (13)
  1. BUSPIRONE [Suspect]
     Active Substance: BUSPIRONE HYDROCHLORIDE
     Indication: DEPRESSION
     Dosage: 1 TWICE DAILY TAKEN BY MOUTH
     Route: 048
  2. TOPIRAMATE. [Concomitant]
     Active Substance: TOPIRAMATE
  3. OMEPRAZOLE. [Suspect]
     Active Substance: OMEPRAZOLE
     Dosage: 1 ONCE DAILY TAKEN BY MOUTH
     Route: 048
  4. CALCIUM [Concomitant]
     Active Substance: CALCIUM
  5. BUSPIRONE [Suspect]
     Active Substance: BUSPIRONE HYDROCHLORIDE
     Indication: ANXIETY
     Dosage: 1 TWICE DAILY TAKEN BY MOUTH
     Route: 048
  6. PRISTIQ EXTENDED RELEASE [Concomitant]
     Active Substance: DESVENLAFAXINE SUCCINATE
  7. HBP MEDICATION [Concomitant]
  8. LAMOTTRIGINE [Concomitant]
  9. RANITIDINE [Concomitant]
     Active Substance: RANITIDINE\RANITIDINE HYDROCHLORIDE
  10. ONDANSETRON [Concomitant]
     Active Substance: ONDANSETRON
  11. WALKER SEAT [Concomitant]
     Active Substance: DEVICE
  12. TRAZODONE [Concomitant]
     Active Substance: TRAZODONE HYDROCHLORIDE
  13. AMLODIPINE [Concomitant]
     Active Substance: AMLODIPINE BESYLATE

REACTIONS (14)
  - Renal failure [None]
  - Fall [None]
  - Sleep disorder [None]
  - Gait disturbance [None]
  - Coma [None]
  - Seizure [None]
  - Cognitive disorder [None]
  - Blood sodium decreased [None]
  - Gastric disorder [None]
  - Muscular weakness [None]
  - Dizziness [None]
  - Balance disorder [None]
  - Subdural haematoma [None]
  - Headache [None]

NARRATIVE: CASE EVENT DATE: 20140525
